FAERS Safety Report 7148759-7 (Version None)
Quarter: 2010Q4

REPORT INFORMATION
  Report Type: 
  Country: None (occurrence: None)
  Receive Date: 20101209
  Receipt Date: 20101130
  Transmission Date: 20110411
  Serious: Yes (Death)
  Sender: FDA-Public Use
  Company Number: AT-ACTELION-A-CH2010-42145

PATIENT
  Sex: Male
  Weight: 85 kg

DRUGS (1)
  1. TRACLEER [Suspect]
     Dosage: UNK , UNK
     Route: 048

REACTIONS (1)
  - LEFT VENTRICULAR FAILURE [None]
